FAERS Safety Report 8380683-4 (Version None)
Quarter: 2012Q2

REPORT INFORMATION
  Report Type: 
  Country: None (occurrence: None)
  Receive Date: 20120523
  Receipt Date: 20120518
  Transmission Date: 20120825
  Serious: Yes (Hospitalization)
  Sender: FDA-Public Use
  Company Number: JP-SANOFI-AVENTIS-2010SA036437

PATIENT
  Age: 60 Year
  Sex: Female
  Weight: 44 kg

DRUGS (25)
  1. OXALIPLATIN [Suspect]
     Route: 041
     Dates: start: 20100319, end: 20100319
  2. FLUOROURACIL [Suspect]
     Indication: LARGE INTESTINE CARCINOMA
     Route: 041
     Dates: start: 20100305, end: 20100305
  3. FLUOROURACIL [Suspect]
     Dosage: ONCE IN 2 DAYS
     Route: 041
     Dates: start: 20100402, end: 20100402
  4. FLUOROURACIL [Suspect]
     Route: 040
     Dates: start: 20100426, end: 20100426
  5. OXALIPLATIN [Suspect]
     Route: 041
     Dates: start: 20100402, end: 20100402
  6. FLUOROURACIL [Suspect]
     Dosage: ONCE IN 2 DAYS
     Route: 041
     Dates: start: 20100319, end: 20100319
  7. OXALIPLATIN [Suspect]
     Route: 041
     Dates: start: 20100514, end: 20100514
  8. LEUCOVORIN CALCIUM [Suspect]
     Route: 041
     Dates: start: 20100319, end: 20100319
  9. FLUOROURACIL [Suspect]
     Route: 040
     Dates: start: 20100514, end: 20100514
  10. OXALIPLATIN [Suspect]
     Route: 041
     Dates: start: 20100426, end: 20100426
  11. LEUCOVORIN CALCIUM [Suspect]
     Route: 041
     Dates: start: 20100426, end: 20100426
  12. AVASTIN [Suspect]
     Route: 041
     Dates: start: 20100402, end: 20100402
  13. LEUCOVORIN CALCIUM [Suspect]
     Route: 041
     Dates: start: 20100514, end: 20100514
  14. FLUOROURACIL [Suspect]
     Route: 040
     Dates: start: 20100319, end: 20100319
  15. FLUOROURACIL [Suspect]
     Route: 040
     Dates: start: 20100402, end: 20100402
  16. FLUOROURACIL [Suspect]
     Dosage: ONCE IN 2 DAYS
     Route: 041
     Dates: start: 20100426, end: 20100426
  17. AMINOLEBAN [Concomitant]
     Dates: start: 20100516, end: 20100519
  18. FLUOROURACIL [Suspect]
     Route: 041
     Dates: start: 20100514, end: 20100514
  19. LEUCOVORIN CALCIUM [Suspect]
     Indication: LARGE INTESTINE CARCINOMA
     Route: 041
     Dates: start: 20100305, end: 20100305
  20. FLUOROURACIL [Suspect]
     Route: 040
     Dates: start: 20100305, end: 20100305
  21. AVASTIN [Suspect]
     Indication: LARGE INTESTINE CARCINOMA
     Route: 041
     Dates: start: 20100319, end: 20100319
  22. AVASTIN [Suspect]
     Route: 041
     Dates: start: 20100514, end: 20100514
  23. OXALIPLATIN [Suspect]
     Indication: LARGE INTESTINE CARCINOMA
     Route: 041
     Dates: start: 20100305, end: 20100305
  24. LEUCOVORIN CALCIUM [Suspect]
     Route: 041
     Dates: start: 20100402, end: 20100402
  25. AVASTIN [Suspect]
     Route: 041
     Dates: start: 20100426, end: 20100426

REACTIONS (2)
  - HEPATIC ENCEPHALOPATHY [None]
  - HYPERAMMONAEMIA [None]
